FAERS Safety Report 14272023 (Version 5)
Quarter: 2019Q2

REPORT INFORMATION
  Report Type: Report from Study
  Country: CA (occurrence: CA)
  Receive Date: 20171211
  Receipt Date: 20190529
  Transmission Date: 20190711
  Serious: Yes (Other)
  Sender: FDA-Public Use
  Company Number: CA-OTSUKA-2017_012834

PATIENT
  Age: 25 Year
  Sex: Female

DRUGS (7)
  1. ABILIFY MAINTENA [Suspect]
     Active Substance: ARIPIPRAZOLE
     Indication: SCHIZOPHRENIA
     Dosage: 1 DF, UNK
     Route: 065
  2. ZELDOX [Suspect]
     Active Substance: ZIPRASIDONE
     Indication: SCHIZOPHRENIA
     Dosage: UNK
     Route: 065
  3. ARIPIPRAZOLE. [Suspect]
     Active Substance: ARIPIPRAZOLE
     Dosage: 1 DF, UNK (1 DF=20)
     Route: 065
  4. ARIPIPRAZOLE. [Suspect]
     Active Substance: ARIPIPRAZOLE
     Indication: SCHIZOPHRENIA
     Dosage: 1 DF, UNK (1 DF=15)
     Route: 065
  5. XEROQUEL [Suspect]
     Active Substance: QUETIAPINE FUMARATE
     Indication: SCHIZOPHRENIA
     Dosage: UNK
     Route: 048
  6. NO DRUG [Suspect]
     Active Substance: UNSPECIFIED INGREDIENT
     Indication: PRODUCT USED FOR UNKNOWN INDICATION
     Dosage: UNK
     Route: 065
  7. ZYPREXA [Suspect]
     Active Substance: OLANZAPINE
     Indication: SCHIZOPHRENIA
     Dosage: UNK
     Route: 065

REACTIONS (21)
  - Obesity [Unknown]
  - Parkinsonism [Unknown]
  - Cognitive disorder [Unknown]
  - Depression [Unknown]
  - Blood prolactin abnormal [Unknown]
  - Orthostatic hypertension [Unknown]
  - Weight increased [Unknown]
  - Dyslipidaemia [Unknown]
  - Substance abuse [Unknown]
  - Insomnia [Unknown]
  - Suicidal ideation [Unknown]
  - Cardiometabolic syndrome [Unknown]
  - Dystonia [Unknown]
  - Dyskinesia [Unknown]
  - Sexual dysfunction [Unknown]
  - Sedation [Unknown]
  - Posture abnormal [Unknown]
  - Impulse-control disorder [Unknown]
  - Diabetes mellitus [Unknown]
  - Anxiety [Unknown]
  - Akathisia [Unknown]
